FAERS Safety Report 7610485-5 (Version None)
Quarter: 2011Q3

REPORT INFORMATION
  Report Type: 
  Country: None (occurrence: None)
  Receive Date: 20110715
  Receipt Date: 20091203
  Transmission Date: 20111222
  Serious: Yes (Hospitalization, Other)
  Sender: FDA-Public Use
  Company Number: US-BAYER-200941691NA

PATIENT
  Age: 82 Year
  Sex: Female
  Weight: 67.12 kg

DRUGS (12)
  1. BAYCOL [Concomitant]
     Dosage: 0.4 MG, HS
     Route: 048
  2. PROTAMINE SULFATE [Concomitant]
     Dosage: 350 MG, UNK
     Route: 042
     Dates: start: 20000713, end: 20000713
  3. CONTRAST MEDIA [Concomitant]
     Indication: CATHETERISATION CARDIAC
     Dosage: UNK
     Dates: start: 20000129
  4. ATIVAN [Concomitant]
     Dosage: 1 MG, HS
     Route: 048
  5. VERSED [Concomitant]
     Dosage: 5 MG X3
     Route: 042
     Dates: start: 20000713, end: 20000713
  6. VERSED [Concomitant]
     Dosage: UNK
     Route: 042
     Dates: start: 20000713
  7. LASIX [Concomitant]
     Dosage: 80 MG, UNK
     Route: 042
     Dates: start: 20000713, end: 20000713
  8. HEPARIN [Concomitant]
     Dosage: UNK
     Route: 042
     Dates: start: 20000713, end: 20000713
  9. TRASYLOL [Suspect]
     Indication: AORTIC VALVE REPLACEMENT
     Dosage: 100 ML, UNK PUMP PRIME
     Route: 042
     Dates: start: 20000713, end: 20000713
  10. TRASYLOL [Suspect]
     Indication: MITRAL VALVE REPAIR
     Dosage: 1 MILLION UNITS X 2 LOADING DOSE
     Route: 042
     Dates: start: 20000713, end: 20000713
  11. VANCOMYCIN [Concomitant]
     Dosage: 500 MG, UNK
     Route: 042
     Dates: start: 20000713, end: 20000713
  12. GENTAMYCIN SULFATE [Concomitant]
     Dosage: 80 MG, UNK
     Route: 042
     Dates: start: 20000713, end: 20000713

REACTIONS (10)
  - EMOTIONAL DISTRESS [None]
  - INJURY [None]
  - UNEVALUABLE EVENT [None]
  - PAIN [None]
  - FEAR [None]
  - RENAL IMPAIRMENT [None]
  - RENAL INJURY [None]
  - RENAL FAILURE [None]
  - ANXIETY [None]
  - STRESS [None]
